FAERS Safety Report 6503931-1 (Version None)
Quarter: 2009Q4

REPORT INFORMATION
  Report Type: 
  Country: None (occurrence: None)
  Receive Date: 20091217
  Receipt Date: 20091211
  Transmission Date: 20100525
  Serious: Yes (Hospitalization, Disabling, Other)
  Sender: FDA-Public Use
  Company Number: US-MERCK-0902USA00147

PATIENT
  Age: 64 Year
  Sex: Female

DRUGS (4)
  1. FOSAMAX [Suspect]
     Indication: OSTEOPOROSIS
     Route: 048
     Dates: start: 19990501, end: 20020101
  2. FOSAMAX [Suspect]
     Route: 048
     Dates: start: 20021201, end: 20031218
  3. FOSAMAX [Suspect]
     Indication: OSTEOPENIA
     Route: 048
     Dates: start: 19990501, end: 20020101
  4. FOSAMAX [Suspect]
     Route: 048
     Dates: start: 20021201, end: 20031218

REACTIONS (20)
  - AORTIC ANEURYSM [None]
  - AORTIC STENOSIS [None]
  - ASTHMA [None]
  - BACK PAIN [None]
  - BASAL CELL CARCINOMA [None]
  - CHEST WALL MASS [None]
  - DYSURIA [None]
  - EXOSTOSIS [None]
  - FATIGUE [None]
  - FOOT FRACTURE [None]
  - HYPERLIPIDAEMIA [None]
  - HYPERTENSION [None]
  - INSOMNIA [None]
  - MUCOSAL ULCERATION [None]
  - OSTEOARTHRITIS [None]
  - OSTEONECROSIS [None]
  - OSTEOPENIA [None]
  - TEMPOROMANDIBULAR JOINT SYNDROME [None]
  - TREATMENT NONCOMPLIANCE [None]
  - VERTIGO [None]
